FAERS Safety Report 25816838 (Version 2)
Quarter: 2025Q4

REPORT INFORMATION
  Report Type: Report from Study
  Country: CA (occurrence: CA)
  Receive Date: 20250918
  Receipt Date: 20251008
  Transmission Date: 20260117
  Serious: Yes (Hospitalization)
  Sender: ABBVIE
  Company Number: CA-ABBVIE-6461446

PATIENT
  Age: 52 Year
  Sex: Female

DRUGS (1)
  1. RINVOQ [Suspect]
     Active Substance: UPADACITINIB
     Indication: Ankylosing spondylitis
     Dosage: FORM STRENGTH: 15MILLIGRAM, DOSE FORM: EXTENDED RELEASE TABLET
     Route: 048
     Dates: start: 20250516, end: 20250829

REACTIONS (10)
  - Vision blurred [Not Recovered/Not Resolved]
  - Acne pustular [Recovering/Resolving]
  - Nausea [Not Recovered/Not Resolved]
  - Syncope [Unknown]
  - Ligament disorder [Unknown]
  - Fall [Unknown]
  - Dizziness [Recovering/Resolving]
  - Headache [Recovering/Resolving]
  - Craniofacial fracture [Unknown]
  - Herpes zoster [Not Recovered/Not Resolved]

NARRATIVE: CASE EVENT DATE: 20250101
